FAERS Safety Report 19992897 (Version 5)
Quarter: 2024Q3

REPORT INFORMATION
  Report Type: Spontaneous
  Country: DE (occurrence: DE)
  Receive Date: 20211026
  Receipt Date: 20240716
  Transmission Date: 20241017
  Serious: Yes (Death, Other)
  Sender: AUROBINDO
  Company Number: DE-AMK-253746

PATIENT
  Age: 73 Year
  Sex: Female
  Weight: 81.2 kg

DRUGS (16)
  1. GABAPENTIN [Suspect]
     Active Substance: GABAPENTIN
     Indication: Product used for unknown indication
     Dosage: 300 MILLIGRAM, TWO TIMES A DAY (300 MG  1 - 0 - 1)
     Route: 065
     Dates: start: 201403, end: 201505
  2. RAMIPRIL [Suspect]
     Active Substance: RAMIPRIL
     Indication: Product used for unknown indication
     Dosage: 5 MILLIGRAM, TWO TIMES A DAY (1 - 0 - 1)
     Route: 065
     Dates: start: 201308, end: 201505
  3. SIMVASTATIN [Suspect]
     Active Substance: SIMVASTATIN
     Indication: Product used for unknown indication
     Dosage: 40 MILLIGRAM, ONCE A DAY (0 - 0 - 1)
     Route: 065
     Dates: start: 201401, end: 201505
  4. AMLODIPINE BESYLATE [Suspect]
     Active Substance: AMLODIPINE BESYLATE
     Indication: Product used for unknown indication
     Dosage: 0.5 DOSAGE FORM, TWO TIMES A DAY (0.5-0-0.5)
     Route: 065
     Dates: start: 201309, end: 201505
  5. ASPIRIN [Suspect]
     Active Substance: ASPIRIN
     Indication: Product used for unknown indication
     Dosage: 100 MILLIGRAM, ONCE A DAY (1-0-0 )
     Route: 065
     Dates: start: 201308, end: 201505
  6. PANTOPRAZOLE SODIUM [Suspect]
     Active Substance: PANTOPRAZOLE SODIUM
     Indication: Product used for unknown indication
     Dosage: 40 MILLIGRAM, ONCE A DAY (1- 0 - 0)
     Route: 065
     Dates: start: 201403, end: 201505
  7. ACTRAPHANE [Suspect]
     Active Substance: INSULIN HUMAN
     Indication: Product used for unknown indication
     Dosage: UNK (18 - 8 )
     Route: 065
     Dates: start: 201401, end: 201505
  8. ACTRAPHANE [Suspect]
     Active Substance: INSULIN HUMAN
     Indication: Type 2 diabetes mellitus
  9. BACLOFEN [Suspect]
     Active Substance: BACLOFEN
     Indication: Product used for unknown indication
     Dosage: 25 MILLIGRAM
     Route: 065
  10. BACLOFEN [Suspect]
     Active Substance: BACLOFEN
     Dosage: 62.5 MILLIGRAM, ONCE A DAY (25MG  1 - 0.5 - 1)
     Route: 065
     Dates: start: 201404, end: 201505
  11. FENTANYL [Suspect]
     Active Substance: FENTANYL\FENTANYL CITRATE
     Indication: Product used for unknown indication
     Dosage: UNK
     Route: 065
  12. FENTANYL [Suspect]
     Active Substance: FENTANYL\FENTANYL CITRATE
     Dosage: 25 MILLIGRAM (25 MILLIGRAM (EVERY 3 DAYS))
     Route: 065
     Dates: start: 201407, end: 201505
  13. FENTANYL CITRATE [Suspect]
     Active Substance: FENTANYL CITRATE
     Indication: Product used for unknown indication
     Dosage: 25 MILLIGRAM (ALLE 3 TAGE)(EVERY 3 DAYS)
     Route: 065
     Dates: start: 201407, end: 201505
  14. MOVICOL [Suspect]
     Active Substance: POLYETHYLENE GLYCOL 3350\POTASSIUM CHLORIDE\SODIUM BICARBONATE\SODIUM CHLORIDE
     Indication: Product used for unknown indication
     Dosage: 1 DOSAGE FORM
     Route: 065
     Dates: start: 201308, end: 201505
  15. TORSEMIDE [Suspect]
     Active Substance: TORSEMIDE
     Indication: Product used for unknown indication
     Dosage: 10 MILLIGRAM, ONCE A DAY (1 - 0 - 0)
     Route: 065
     Dates: start: 201310, end: 201505
  16. XARELTO [Suspect]
     Active Substance: RIVAROXABAN
     Indication: Product used for unknown indication
     Dosage: 15 MILLIGRAM, ONCE A DAY (1 - 0 - 0 )
     Route: 065
     Dates: start: 201403, end: 201505

REACTIONS (9)
  - Sepsis [Fatal]
  - Lactic acidosis [Fatal]
  - Sinusitis [Fatal]
  - Dehydration [Fatal]
  - Pneumonia aspiration [Fatal]
  - Septic shock [Fatal]
  - Hyperglycaemia [Fatal]
  - Renal failure [Fatal]
  - Urosepsis [Fatal]

NARRATIVE: CASE EVENT DATE: 20150101
